FAERS Safety Report 4364850-2 (Version None)
Quarter: 2004Q2

REPORT INFORMATION
  Report Type: 
  Country: None (occurrence: None)
  Receive Date: 20040521
  Receipt Date: 20040505
  Transmission Date: 20050107
  Serious: Yes (Other)
  Sender: FDA-Public Use
  Company Number: USA040566775

PATIENT
  Sex: Male
  Weight: 189 kg

DRUGS (1)
  1. XIGRIS [Suspect]
     Dosage: 24 UG/KG/HR
     Dates: start: 20040503

REACTIONS (6)
  - CATHETER SITE HAEMORRHAGE [None]
  - ENDOTRACHEAL INTUBATION COMPLICATION [None]
  - GASTROINTESTINAL HAEMORRHAGE [None]
  - INTERNATIONAL NORMALISED RATIO INCREASED [None]
  - PLATELET COUNT DECREASED [None]
  - PROCEDURAL COMPLICATION [None]
